FAERS Safety Report 16971050 (Version 1)
Quarter: 2019Q4

REPORT INFORMATION
  Report Type: Spontaneous
  Country: US (occurrence: US)
  Receive Date: 20190912
  Receipt Date: 20190912
  Transmission Date: 20200122
  Serious: No
  Sender: FDA-Public Use
  Company Number: None

PATIENT
  Age: 60 Year
  Sex: Male

DRUGS (8)
  1. SERTRALINE [Concomitant]
     Active Substance: SERTRALINE HYDROCHLORIDE
  2. MELOXICAM. [Concomitant]
     Active Substance: MELOXICAM
  3. NITROFURANTOIN. [Concomitant]
     Active Substance: NITROFURANTOIN
  4. DILTIAZEM. [Concomitant]
     Active Substance: DILTIAZEM
  5. TAMSULOSIN [Concomitant]
     Active Substance: TAMSULOSIN
  6. FLOVENT [Concomitant]
     Active Substance: FLUTICASONE PROPIONATE
  7. SULFASALAZINE. [Concomitant]
     Active Substance: SULFASALAZINE
  8. ENBREL [Suspect]
     Active Substance: ETANERCEPT
     Indication: RHEUMATOID ARTHRITIS
     Route: 058
     Dates: start: 20180507

REACTIONS (1)
  - Surgery [None]

NARRATIVE: CASE EVENT DATE: 20190828
